FAERS Safety Report 8268524-7 (Version None)
Quarter: 2012Q2

REPORT INFORMATION
  Report Type: 
  Country: None (occurrence: None)
  Receive Date: 20120409
  Receipt Date: 20120402
  Transmission Date: 20120825
  Serious: Yes (Hospitalization)
  Sender: FDA-Public Use
  Company Number: US-GLAXOSMITHKLINE-A0972026A

PATIENT
  Age: 63 Year
  Sex: Female

DRUGS (14)
  1. LIPITOR [Concomitant]
  2. METFORMIN HCL [Concomitant]
  3. PLAVIX [Concomitant]
  4. BENAZEPRIL HYDROCHLORIDE [Concomitant]
  5. LORAZEPAM [Concomitant]
  6. OXYGEN [Concomitant]
  7. ADVAIR DISKUS 100/50 [Suspect]
     Indication: CHRONIC OBSTRUCTIVE PULMONARY DISEASE
     Dosage: 1PUFF TWICE PER DAY
     Route: 055
     Dates: start: 20050401
  8. AMLODIPINE [Concomitant]
  9. SERTRALINE HYDROCHLORIDE [Concomitant]
  10. ASPIRIN [Concomitant]
  11. VITAMIN D [Concomitant]
  12. METOPROLOL TARTRATE [Concomitant]
  13. VENTOLIN [Suspect]
     Indication: CHRONIC OBSTRUCTIVE PULMONARY DISEASE
     Dosage: 1PUFF AS REQUIRED
     Route: 055
     Dates: start: 20080401
  14. SPIRIVA [Concomitant]

REACTIONS (6)
  - CHEST INJURY [None]
  - ROAD TRAFFIC ACCIDENT [None]
  - LOSS OF CONSCIOUSNESS [None]
  - TERMINAL STATE [None]
  - MYOCARDIAL INFARCTION [None]
  - RESPIRATORY ARREST [None]
